FAERS Safety Report 7811340-8 (Version None)
Quarter: 2011Q4

REPORT INFORMATION
  Report Type: 
  Country: None (occurrence: None)
  Receive Date: 20111013
  Receipt Date: 20110928
  Transmission Date: 20120403
  Serious: Yes (Hospitalization)
  Sender: FDA-Public Use
  Company Number: JP-NOVOPROD-336188

PATIENT

DRUGS (1)
  1. INNOLET 30R CHU [Suspect]
     Indication: DIABETES MELLITUS
     Dosage: TWICE A DAY INJECTION
     Route: 058
     Dates: end: 20110725

REACTIONS (3)
  - HYPOGLYCAEMIA UNAWARENESS [None]
  - DIABETES MELLITUS INADEQUATE CONTROL [None]
  - HYPERGLYCAEMIA [None]
